FAERS Safety Report 5099667-7 (Version None)
Quarter: 2006Q3

REPORT INFORMATION
  Report Type: 
  Country: None (occurrence: None)
  Receive Date: 20060908
  Receipt Date: 20060824
  Transmission Date: 20061208
  Serious: Yes (Other)
  Sender: FDA-Public Use
  Company Number: PHEH2006US10999

PATIENT
  Age: 87 Year
  Sex: Female

DRUGS (7)
  1. DILANTIN [Concomitant]
  2. ASPIRIN [Concomitant]
  3. POLYETHYLENE GLYCOL [Concomitant]
  4. METAMUCIL [Concomitant]
  5. ALPRAZOLAM [Concomitant]
  6. DARVOCET [Concomitant]
  7. ZELNORM [Suspect]
     Indication: CONSTIPATION
     Dosage: 6 MG, QD
     Route: 048
     Dates: start: 20060817, end: 20060821

REACTIONS (1)
  - RECTAL HAEMORRHAGE [None]
